FAERS Safety Report 8535730 (Version 4)
Quarter: 2018Q3

REPORT INFORMATION
  Report Type: Spontaneous
  Country: JP (occurrence: JP)
  Receive Date: 20120430
  Receipt Date: 20180830
  Transmission Date: 20181010
  Serious: Yes (Other)
  Sender: FDA-Public Use
  Company Number: PHHY2012JP033582

PATIENT
  Age: 75 Year
  Sex: Male

DRUGS (5)
  1. EXELON PATCH [Suspect]
     Active Substance: RIVASTIGMINE
     Indication: DEMENTIA ALZHEIMER^S TYPE
     Dosage: 4.5 MG, QD
     Route: 062
     Dates: start: 20120118, end: 20120201
  2. EXELON PATCH [Suspect]
     Active Substance: RIVASTIGMINE
     Dosage: 9 MG, QD
     Route: 062
     Dates: start: 20120215, end: 20120228
  3. EXELON PATCH [Suspect]
     Active Substance: RIVASTIGMINE
     Dosage: 9 MG, QD
     Route: 062
     Dates: start: 20120202
  4. LIDOMEX [Suspect]
     Active Substance: PREDNISOLONE VALERATE ACETATE
     Indication: APPLICATION SITE DERMATITIS
     Dosage: UNK
     Route: 062
     Dates: end: 20120328
  5. EXELON PATCH [Suspect]
     Active Substance: RIVASTIGMINE
     Dosage: 13.5 MG, QD
     Route: 062
     Dates: start: 20120314, end: 20120328

REACTIONS (6)
  - Application site eczema [Recovered/Resolved]
  - Generalised erythema [Recovered/Resolved]
  - Eczema [Recovered/Resolved]
  - Dermatitis [Recovered/Resolved]
  - Application site scab [Recovered/Resolved]
  - Application site haemorrhage [Recovered/Resolved]

NARRATIVE: CASE EVENT DATE: 20120229
